FAERS Safety Report 7924460-4 (Version None)
Quarter: 2011Q4

REPORT INFORMATION
  Report Type: 
  Country: None (occurrence: None)
  Receive Date: 20111117
  Receipt Date: 20110322
  Transmission Date: 20120403
  Serious: No
  Sender: FDA-Public Use
  Company Number: US-AMGEN-USASP2011015471

PATIENT
  Age: 49 Year
  Sex: Female

DRUGS (1)
  1. ENBREL [Suspect]
     Indication: PSORIATIC ARTHROPATHY
     Dosage: 50 MG, QWK
     Dates: start: 20100301

REACTIONS (7)
  - PSORIATIC ARTHROPATHY [None]
  - BACK INJURY [None]
  - FURUNCLE [None]
  - SCAR [None]
  - VULVOVAGINAL DISCOMFORT [None]
  - VAGINAL CYST [None]
  - ROAD TRAFFIC ACCIDENT [None]
